FAERS Safety Report 12585694 (Version 1)
Quarter: 2016Q3

REPORT INFORMATION
  Report Type: Report from Study
  Country: US (occurrence: US)
  Receive Date: 20160725
  Receipt Date: 20160725
  Transmission Date: 20161109
  Serious: Yes (Other)
  Sender: FDA-Public Use
  Company Number: PHEH2016US018191

PATIENT
  Age: 49 Year
  Weight: 121.5 kg

DRUGS (2)
  1. TASIGNA [Suspect]
     Active Substance: NILOTINIB
     Indication: CHRONIC MYELOID LEUKAEMIA
     Dosage: 150 MG, QD
     Route: 048
     Dates: start: 20160512
  2. TASIGNA [Suspect]
     Active Substance: NILOTINIB
     Dosage: UNK UNK, QOD
     Route: 048

REACTIONS (1)
  - Bone marrow failure [Unknown]

NARRATIVE: CASE EVENT DATE: 20160718
